FAERS Safety Report 5709099-3 (Version None)
Quarter: 2008Q2

REPORT INFORMATION
  Report Type: 
  Country: None (occurrence: None)
  Receive Date: 20080416
  Receipt Date: 20080416
  Transmission Date: 20081010
  Serious: No
  Sender: FDA-Public Use
  Company Number: None

PATIENT
  Age: 52 Year
  Sex: Male
  Weight: 104.3273 kg

DRUGS (2)
  1. VYTORIN [Suspect]
  2. LIPITOR [Suspect]

REACTIONS (3)
  - CONSTIPATION [None]
  - ERECTILE DYSFUNCTION [None]
  - LIBIDO DECREASED [None]
